FAERS Safety Report 7445420-6 (Version None)
Quarter: 2011Q2

REPORT INFORMATION
  Report Type: 
  Country: None (occurrence: None)
  Receive Date: 20110429
  Receipt Date: 20110422
  Transmission Date: 20111010
  Serious: Yes (Other)
  Sender: FDA-Public Use
  Company Number: PHHY2011CA26307

PATIENT
  Sex: Male

DRUGS (8)
  1. BACLOFEN [Concomitant]
  2. TRILEPTAL [Suspect]
     Indication: EPILEPSY
     Dosage: 7 ML QAM AND QPM, 10 ML QHS
  3. PREVACID [Concomitant]
  4. SINGULAIR [Concomitant]
  5. LAMOTRIGINE [Concomitant]
  6. DULCOLAX [Concomitant]
  7. MELATONIN [Concomitant]
  8. DEPROLEX [Concomitant]

REACTIONS (1)
  - HYPOTHYROIDISM [None]
